FAERS Safety Report 7893230-8 (Version None)
Quarter: 2011Q4

REPORT INFORMATION
  Report Type: 
  Country: None (occurrence: None)
  Receive Date: 20111104
  Receipt Date: 20111031
  Transmission Date: 20120403
  Serious: Yes (Death, Hospitalization)
  Sender: FDA-Public Use
  Company Number: PHHY2011DE87642

PATIENT
  Sex: Male
  Weight: 58 kg

DRUGS (2)
  1. ZOMETA [Suspect]
     Indication: BONE DISORDER
     Dosage: 4 MG, EVERY 4 WEEKS
     Route: 042
     Dates: start: 20101116, end: 20110802
  2. DOCETAXEL [Concomitant]
     Dosage: 121MG-131MG
     Dates: start: 20101207, end: 20110705

REACTIONS (5)
  - NEOPLASM PROGRESSION [None]
  - BLOOD TEST ABNORMAL [None]
  - BRONCHITIS [None]
  - BLADDER PAIN [None]
  - NEOPLASM MALIGNANT [None]
